FAERS Safety Report 17746652 (Version 2)
Quarter: 2020Q2

REPORT INFORMATION
  Report Type: Spontaneous
  Country: US (occurrence: US)
  Receive Date: 20200505
  Receipt Date: 20200603
  Transmission Date: 20200714
  Serious: Yes (Other)
  Sender: FDA-Public Use
  Company Number: US-MYLANLABS-2020M1043941

PATIENT
  Weight: 133 kg

DRUGS (2)
  1. HEPARIN SODIUM INJECTION USP [Suspect]
     Active Substance: HEPARIN SODIUM
     Indication: CAROTID REVASCULARISATION
     Dosage: 13000 INTERNATIONAL UNIT
  2. HEPARIN SODIUM INJECTION USP [Suspect]
     Active Substance: HEPARIN SODIUM
     Dosage: 7000 INTERNATIONAL UNIT

REACTIONS (1)
  - Drug ineffective [Unknown]
